FAERS Safety Report 8168526-5 (Version None)
Quarter: 2012Q1

REPORT INFORMATION
  Report Type: 
  Country: None (occurrence: None)
  Receive Date: 20120227
  Receipt Date: 20120227
  Transmission Date: 20120608
  Serious: Yes (Hospitalization, Other)
  Sender: FDA-Public Use
  Company Number: None

PATIENT
  Age: 67 Year
  Sex: Female

DRUGS (1)
  1. HURRICAINE ONE [Suspect]
     Indication: ENDOSCOPY
     Dosage: 0.5 ML
     Route: 048
     Dates: start: 20120222, end: 20120222

REACTIONS (1)
  - METHAEMOGLOBINAEMIA [None]
